FAERS Safety Report 20611182 (Version 11)
Quarter: 2023Q2

REPORT INFORMATION
  Report Type: Report from Study
  Country: JP (occurrence: JP)
  Receive Date: 20220318
  Receipt Date: 20230425
  Transmission Date: 20230721
  Serious: Yes (Life-Threatening, Hospitalization, Other)
  Sender: FDA-Public Use
  Company Number: JP-PFIZER INC-202200411474

PATIENT
  Age: 1 Year
  Sex: Female
  Weight: 9.92 kg

DRUGS (21)
  1. SIROLIMUS [Suspect]
     Active Substance: SIROLIMUS
     Indication: Lymphangioma
     Dosage: 1 MG ONCE DAILY
     Route: 048
     Dates: start: 20181207, end: 20181216
  2. SIROLIMUS [Suspect]
     Active Substance: SIROLIMUS
     Dosage: 1 MG, ONCE EVERY OTHER DAY
     Route: 048
     Dates: start: 20181217, end: 20190317
  3. SIROLIMUS [Suspect]
     Active Substance: SIROLIMUS
     Dosage: 1 MG, ONCE DAILY
     Route: 048
     Dates: start: 20190318, end: 20190506
  4. SIROLIMUS [Suspect]
     Active Substance: SIROLIMUS
     Dosage: 1 MG, ONCE EVERY OTHER DAY
     Route: 048
     Dates: start: 20190507, end: 20190602
  5. SIROLIMUS [Suspect]
     Active Substance: SIROLIMUS
     Dosage: 1 MG/DAY (ADMINISTERED 5 TIMES WEEKLY ON MONDAY, TUESDAY, WEDNESDAY, FRIDAY AND SATURDAY)
     Route: 048
     Dates: start: 20190603, end: 20200220
  6. SIROLIMUS [Suspect]
     Active Substance: SIROLIMUS
     Dosage: 1MG, 3 TIMES WEEKLY (ON MONDAY, WEDNESDAY AND FRIDAY)
     Route: 048
     Dates: start: 20200221, end: 20200226
  7. SIROLIMUS [Suspect]
     Active Substance: SIROLIMUS
     Dosage: 1 MG, 4 TIMES WEEKLY (ON MONDAY, WEDNESDAY, FRIDAY AND SUNDAY)
     Route: 048
     Dates: start: 20200227, end: 20200303
  8. SIROLIMUS [Suspect]
     Active Substance: SIROLIMUS
     Dosage: 1MG, 5 TIMES WEEKLY (ON MONDAY, TUESDAY, WEDNESDAY, FRIDAY AND SATURDAY)
     Route: 048
     Dates: start: 20200304, end: 20200315
  9. SIROLIMUS [Suspect]
     Active Substance: SIROLIMUS
     Dosage: 1 MG, DAILY
     Route: 048
     Dates: start: 20210225, end: 20210304
  10. SIROLIMUS [Suspect]
     Active Substance: SIROLIMUS
     Dosage: 1 MG, DAILY
     Route: 048
     Dates: start: 20210317
  11. SIROLIMUS [Suspect]
     Active Substance: SIROLIMUS
     Dosage: 1 MG/DAY
     Route: 048
     Dates: start: 20210927, end: 20220602
  12. HERBALS [Concomitant]
     Active Substance: HERBALS
     Indication: Lymphangioma
     Dosage: UNK
     Route: 048
  13. OGIKENCHUTO [ASTRAGALUS SPP. ROOT;CINNAMOMUM CASSIA BARK;GLYCYRRHIZA S [Concomitant]
     Indication: Lymphangioma
     Dosage: UNK
     Route: 048
  14. POLAPREZINC [Concomitant]
     Active Substance: POLAPREZINC
     Indication: Lymphangioma
     Dosage: UNK
     Route: 048
     Dates: end: 20181210
  15. LEVOCARNITINE HYDROCHLORIDE [Concomitant]
     Active Substance: LEVOCARNITINE HYDROCHLORIDE
     Indication: Lymphangioma
     Dosage: UNK
     Route: 048
     Dates: end: 20210527
  16. FUROSEMIDE [Concomitant]
     Active Substance: FUROSEMIDE
     Indication: Lymphangioma
     Dosage: UNK
     Route: 048
  17. SPIRONOLACTONE [Concomitant]
     Active Substance: SPIRONOLACTONE
     Indication: Lymphangioma
     Dosage: UNK
     Route: 048
  18. FERRIC PYROPHOSPHATE [Concomitant]
     Active Substance: FERRIC PYROPHOSPHATE
     Dosage: UNK
     Route: 048
     Dates: end: 20190507
  19. ZINC [Concomitant]
     Active Substance: ZINC
     Dosage: UNK
     Route: 048
     Dates: start: 20181210, end: 20210422
  20. MENATETRENONE [Concomitant]
     Active Substance: MENATETRENONE
     Indication: Lymphangioma
     Dosage: UNK
     Route: 048
     Dates: start: 20200504
  21. PROPRANOLOL HYDROCHLORIDE [Concomitant]
     Active Substance: PROPRANOLOL HYDROCHLORIDE
     Indication: Lymphangioma
     Dosage: UNK
     Route: 048
     Dates: start: 20200423

REACTIONS (14)
  - Intra-abdominal haemorrhage [Recovering/Resolving]
  - Myelosuppression [Recovering/Resolving]
  - Device related infection [Recovering/Resolving]
  - Anaemia [Recovering/Resolving]
  - Anaemia [Recovering/Resolving]
  - Anaemia [Recovering/Resolving]
  - Anaemia [Recovering/Resolving]
  - Anaemia [Recovering/Resolving]
  - Anaemia [Recovering/Resolving]
  - Anaemia [Recovering/Resolving]
  - Anaemia [Recovering/Resolving]
  - Hypertriglyceridaemia [Not Recovered/Not Resolved]
  - Product administered to patient of inappropriate age [Unknown]
  - Wrong technique in product usage process [Unknown]

NARRATIVE: CASE EVENT DATE: 20181207
